FAERS Safety Report 14976532 (Version 1)
Quarter: 2018Q2

REPORT INFORMATION
  Report Type: Spontaneous
  Country: JP (occurrence: JP)
  Receive Date: 20180605
  Receipt Date: 20180605
  Transmission Date: 20180711
  Serious: Yes (Other)
  Sender: FDA-Public Use
  Company Number: GXJP2018JP001110

PATIENT
  Age: 52 Year
  Sex: Female

DRUGS (4)
  1. ISONIAZID. [Suspect]
     Active Substance: ISONIAZID
     Indication: CHEMOTHERAPY
     Dosage: UNK
     Route: 065
  2. PYRAZINAMIDE. [Suspect]
     Active Substance: PYRAZINAMIDE
     Indication: CHEMOTHERAPY
     Dosage: UNK
     Route: 065
  3. ETHAMBUTOL HYDROCHLORIDE. [Suspect]
     Active Substance: ETHAMBUTOL HYDROCHLORIDE
     Indication: CHEMOTHERAPY
     Dosage: UNK
     Route: 065
  4. RIFAMPICIN CAPSULES [Suspect]
     Active Substance: RIFAMPIN
     Indication: CHEMOTHERAPY
     Dosage: UNK
     Route: 048

REACTIONS (6)
  - Tuberculoma of central nervous system [Unknown]
  - Mass [Unknown]
  - Altered state of consciousness [Unknown]
  - Sensory disturbance [Unknown]
  - Seizure [Unknown]
  - Paradoxical drug reaction [Unknown]
